FAERS Safety Report 5698646-6 (Version None)
Quarter: 2008Q2

REPORT INFORMATION
  Report Type: 
  Country: None (occurrence: None)
  Receive Date: 20080408
  Receipt Date: 20070202
  Transmission Date: 20081010
  Serious: Yes (Other)
  Sender: FDA-Public Use
  Company Number: US-BAYER-US-2006-040109

PATIENT
  Age: 62 Year
  Sex: Male

DRUGS (3)
  1. CLIMARA [Suspect]
     Indication: PROSTATE CANCER
     Route: 062
     Dates: start: 20061001
  2. CLIMARA [Suspect]
     Route: 062
     Dates: end: 20061202
  3. LOVENOX [Concomitant]
     Dosage: UNIT DOSE: 100 MG

REACTIONS (1)
  - CARDIAC FAILURE CONGESTIVE [None]
